FAERS Safety Report 4606734-8 (Version None)
Quarter: 2005Q1

REPORT INFORMATION
  Report Type: 
  Country: None (occurrence: None)
  Receive Date: 20050309
  Receipt Date: 20050223
  Transmission Date: 20050727
  Serious: Yes (Life-Threatening, Hospitalization, Other)
  Sender: FDA-Public Use
  Company Number: US_0503113672

PATIENT
  Age: 77 Year
  Sex: Female
  Weight: 82 kg

DRUGS (4)
  1. HUMALOG [Suspect]
     Indication: DIABETES MELLITUS
  2. HUMULIN N [Suspect]
     Indication: DIABETES MELLITUS
     Dates: start: 19900101
  3. LIPITOR [Concomitant]
  4. ASPIRIN [Concomitant]

REACTIONS (20)
  - ABASIA [None]
  - ABDOMINAL DISTENSION [None]
  - ARTHRITIS [None]
  - BACTERIAL INFECTION [None]
  - BLOOD GLUCOSE INCREASED [None]
  - CAROTID ARTERY DISEASE [None]
  - DEMENTIA ALZHEIMER'S TYPE [None]
  - DIALYSIS [None]
  - DYSPNOEA EXERTIONAL [None]
  - FLUID RETENTION [None]
  - GASTROOESOPHAGEAL REFLUX DISEASE [None]
  - INFECTION [None]
  - IRON DEFICIENCY [None]
  - LOSS OF CONSCIOUSNESS [None]
  - MEDICATION ERROR [None]
  - PNEUMONIA [None]
  - RENAL DISORDER [None]
  - THYROID DISORDER [None]
  - THYROID PAIN [None]
  - VOCAL CORD DISORDER [None]
